FAERS Safety Report 5589182-6 (Version None)
Quarter: 2008Q1

REPORT INFORMATION
  Report Type: 
  Country: None (occurrence: None)
  Receive Date: 20080113
  Receipt Date: 20080108
  Transmission Date: 20080703
  Serious: No
  Sender: FDA-Public Use
  Company Number: US-ELI_LILLY_AND_COMPANY-US200705004891

PATIENT
  Sex: Female

DRUGS (4)
  1. ZYPREXA [Suspect]
     Dosage: 5 MG, EACH EVENING
     Route: 065
     Dates: start: 19970801, end: 20061101
  2. ZYPREXA [Suspect]
     Dates: start: 20070811
  3. TRAZODONE HCL [Concomitant]
     Dosage: 50 MG, EACH EVENING
     Route: 065
     Dates: start: 19970801
  4. DULCOLAX [Concomitant]
     Dosage: 5 MG, EACH EVENING
     Dates: start: 19970801

REACTIONS (2)
  - INSOMNIA [None]
  - LEUKOPENIA [None]
